FAERS Safety Report 7002542-1 (Version None)
Quarter: 2010Q3

REPORT INFORMATION
  Report Type: 
  Country: None (occurrence: None)
  Receive Date: 20100920
  Receipt Date: 20091217
  Transmission Date: 20110219
  Serious: No
  Sender: FDA-Public Use
  Company Number: US-ASTRAZENECA-2009SE32613

PATIENT
  Age: 76 Year
  Sex: Female
  Weight: 65.8 kg

DRUGS (3)
  1. SEROQUEL [Suspect]
     Indication: WITHDRAWAL SYNDROME
     Route: 048
     Dates: start: 20090501
  2. PROZAC [Concomitant]
  3. NORTRIPTYLINE HCL [Concomitant]

REACTIONS (3)
  - INSOMNIA [None]
  - MIDDLE INSOMNIA [None]
  - SCIATICA [None]
